FAERS Safety Report 4445848-2 (Version None)
Quarter: 2004Q3

REPORT INFORMATION
  Report Type: 
  Country: None (occurrence: None)
  Receive Date: 20040908
  Receipt Date: 20040908
  Transmission Date: 20050211
  Serious: Yes (Hospitalization)
  Sender: FDA-Public Use
  Company Number: None

PATIENT
  Age: 69 Year
  Sex: Male

DRUGS (6)
  1. LISINOPRIL [Suspect]
     Indication: HYPERTENSION
     Dosage: 30 MG QD
     Dates: start: 20020430
  2. LORAZEPAM [Concomitant]
  3. GUAIFENESIN [Concomitant]
  4. ACIPHEX [Concomitant]
  5. GLYBURIDE [Concomitant]
  6. FESO4 [Concomitant]

REACTIONS (1)
  - HYPERKALAEMIA [None]
